FAERS Safety Report 7914562-0 (Version None)
Quarter: 2011Q4

REPORT INFORMATION
  Report Type: 
  Country: None (occurrence: None)
  Receive Date: 20111115
  Receipt Date: 20111031
  Transmission Date: 20120403
  Serious: Yes (Other)
  Sender: FDA-Public Use
  Company Number: PHHY2011JP96564

PATIENT
  Sex: Female

DRUGS (2)
  1. NEORAL [Suspect]
     Dosage: 50 MG, DAILY DIVIDED INTI TWO DOSES
     Route: 048
  2. NEORAL [Suspect]
     Indication: SYSTEMIC LUPUS ERYTHEMATOSUS
     Dosage: 100 MG, DAILY DIVIDED INTI TWO DOSES
     Route: 048

REACTIONS (2)
  - INTENTIONAL OVERDOSE [None]
  - SUICIDE ATTEMPT [None]
